FAERS Safety Report 6680929-4 (Version None)
Quarter: 2010Q2

REPORT INFORMATION
  Report Type: 
  Country: None (occurrence: None)
  Receive Date: 20100414
  Receipt Date: 20100408
  Transmission Date: 20101027
  Serious: Yes (Other)
  Sender: FDA-Public Use
  Company Number: US-JNJFOC-20080700713

PATIENT
  Sex: Female
  Weight: 72.58 kg

DRUGS (3)
  1. LEVAQUIN [Suspect]
     Indication: ASTHMA
     Route: 048
  2. SYNTHROID [Concomitant]
     Indication: THYROID DISORDER
     Route: 065
  3. ADDERALL 30 [Concomitant]
     Indication: HEAD INJURY
     Route: 065

REACTIONS (4)
  - ARTHRALGIA [None]
  - ARTHRITIS [None]
  - LIVER FUNCTION TEST ABNORMAL [None]
  - TENDON DISORDER [None]
